FAERS Safety Report 14502663 (Version 2)
Quarter: 2018Q1

REPORT INFORMATION
  Report Type: Report from Study
  Country: KR (occurrence: KR)
  Receive Date: 20180208
  Receipt Date: 20180208
  Transmission Date: 20180509
  Serious: Yes (Hospitalization)
  Sender: FDA-Public Use
  Company Number: KR-UNITED THERAPEUTICS-UNT-2018-000765

PATIENT
  Age: 60 Year
  Sex: Male
  Weight: 60.2 kg

DRUGS (16)
  1. IRINOTECAN [Suspect]
     Active Substance: IRINOTECAN
     Indication: SMALL CELL LUNG CANCER
     Dosage: 547 MG, TOTAL DAILY DOSE, CYCLE 1
     Route: 041
     Dates: start: 20180108
  2. ASPIRIN                            /00002701/ [Concomitant]
     Active Substance: ASPIRIN
     Indication: CEREBRAL INFARCTION
     Dosage: 100 MG, TOTAL DAILY DOSE
     Route: 065
     Dates: start: 1997
  3. ALOXI [Concomitant]
     Active Substance: PALONOSETRON HYDROCHLORIDE
     Indication: PREMEDICATION
     Dosage: 0.25 MG, TOTAL DAILY DOSE
     Route: 065
     Dates: start: 20180108, end: 20180108
  4. JANUMET [Concomitant]
     Active Substance: METFORMIN HYDROCHLORIDE\SITAGLIPTIN PHOSPHATE
     Indication: DIABETES MELLITUS
     Dosage: 850 MG, TOTAL DAILY DOSE
     Route: 065
     Dates: start: 1997
  5. MACPERAN [Concomitant]
     Active Substance: METOCLOPRAMIDE HYDROCHLORIDE
     Indication: VOMITING
     Dosage: 15 MG, TOTAL DAILY DOSE
     Route: 065
     Dates: start: 20180108, end: 20180113
  6. AMITRIPTYLINE HYDROCHLORIDE. [Concomitant]
     Active Substance: AMITRIPTYLINE HYDROCHLORIDE
     Indication: CEREBRAL INFARCTION
     Dosage: 10 MG, TOTAL DAILY DOSE
     Route: 065
     Dates: start: 201706
  7. GABAPENTIN. [Concomitant]
     Active Substance: GABAPENTIN
     Indication: PARAESTHESIA
     Dosage: 300 MG, TOTAL DAILY DOSE
     Route: 065
     Dates: start: 201706
  8. QUTIAPINE [Concomitant]
     Indication: CEREBRAL INFARCTION
     Dosage: 50 MG, TOTAL DAILY DOSE
     Route: 065
     Dates: start: 201707
  9. LOPAINE [Concomitant]
     Indication: DIARRHOEA
     Dosage: 24 MG, TOTAL DAILY DOSE
     Route: 065
     Dates: start: 20180112, end: 20180112
  10. IRON [Concomitant]
     Active Substance: IRON
     Indication: ANAEMIA
     Dosage: 150 MG, TOTAL DAILY DOSE
     Route: 065
     Dates: start: 199706
  11. PLAKON [Concomitant]
     Indication: PRODUCT USED FOR UNKNOWN INDICATION
     Dosage: 1.5 MG, TOTAL DAILY DOSE
     Route: 065
     Dates: start: 20180108, end: 20180108
  12. TRIAZOLAM. [Concomitant]
     Active Substance: TRIAZOLAM
     Indication: INSOMNIA
     Dosage: 0.25 MG, TOTAL DAILY DOSE
     Route: 065
     Dates: start: 2017
  13. REBAMIPIDE [Concomitant]
     Active Substance: REBAMIPIDE
     Indication: PROPHYLAXIS
     Dosage: 200 MG, TOTAL DAILY DOSE
     Route: 065
     Dates: start: 2017
  14. MACPERAN [Concomitant]
     Active Substance: METOCLOPRAMIDE HYDROCHLORIDE
     Indication: PREMEDICATION
     Dosage: 10 MG, TOTAL DAILY DOSE
     Route: 065
     Dates: start: 20180108, end: 20180108
  15. ATROPINE ALCON [Concomitant]
     Indication: PREMEDICATION
     Dosage: 0.5 MG, TOTAL DAILY DOSE
     Route: 065
     Dates: start: 20180108, end: 20180108
  16. RINOEBASTEL [Concomitant]
     Indication: RHINORRHOEA
     Dosage: 1 CAPSULE, TOTAL DAILY DOSE
     Route: 065
     Dates: start: 20180108, end: 20180117

REACTIONS (5)
  - Abdominal pain [Not Recovered/Not Resolved]
  - Neutrophil count decreased [Recovered/Resolved]
  - Diarrhoea [Not Recovered/Not Resolved]
  - Febrile neutropenia [Recovered/Resolved]
  - Abdominal distension [Not Recovered/Not Resolved]

NARRATIVE: CASE EVENT DATE: 20180117
